FAERS Safety Report 4635815-8 (Version None)
Quarter: 2005Q2

REPORT INFORMATION
  Report Type: 
  Country: None (occurrence: None)
  Receive Date: 20050415
  Receipt Date: 20050404
  Transmission Date: 20051028
  Serious: Yes (Hospitalization, Disabling)
  Sender: FDA-Public Use
  Company Number: JP-JNJFOC-20050205092

PATIENT
  Sex: Female
  Weight: 51 kg

DRUGS (28)
  1. REMICADE [Suspect]
     Route: 042
  2. REMICADE [Suspect]
     Route: 042
  3. REMICADE [Suspect]
     Route: 042
  4. REMICADE [Suspect]
     Indication: RHEUMATOID ARTHRITIS
     Route: 042
  5. METHOTREXATE [Suspect]
  6. METHOTREXATE [Suspect]
  7. METHOTREXATE [Suspect]
  8. METHOTREXATE [Suspect]
     Indication: DRUG USE FOR UNKNOWN INDICATION
  9. DIFLUCAN [Suspect]
     Indication: VAGINAL CANDIDIASIS
     Route: 049
  10. KEFRAL [Suspect]
     Dosage: 3 C
     Route: 049
  11. KEFRAL [Suspect]
     Indication: UPPER RESPIRATORY TRACT INFECTION
     Dosage: 3 C
     Route: 049
  12. PL GRANULES [Suspect]
     Route: 049
  13. PL GRANULES [Suspect]
     Route: 049
  14. PL GRANULES [Suspect]
     Route: 049
  15. PL GRANULES [Suspect]
     Indication: UPPER RESPIRATORY TRACT INFECTION
     Route: 049
  16. PREDNISOLONE [Suspect]
     Route: 049
  17. PREDNISOLONE [Suspect]
     Indication: RHEUMATOID ARTHRITIS
     Route: 049
  18. PREDONINE [Suspect]
     Indication: RHEUMATOID ARTHRITIS
     Route: 042
  19. VOLTAREN [Concomitant]
     Indication: RHEUMATOID ARTHRITIS
     Route: 049
  20. FOLIAMIN [Concomitant]
     Dosage: EVERY TUESDAY, WEDNESDAY AND THURSDAY.
     Route: 049
  21. FOLIAMIN [Concomitant]
     Indication: PROPHYLAXIS
     Dosage: EVERY TUESDAY
     Route: 049
  22. SELBEX [Concomitant]
     Route: 049
  23. HALCION [Concomitant]
     Route: 049
  24. POLARAMINE [Concomitant]
     Route: 049
  25. PYDOXAL [Concomitant]
     Indication: PROPHYLAXIS
     Route: 049
  26. INH [Concomitant]
     Route: 049
  27. RHEUMATREX [Concomitant]
     Dosage: EVERY SUNDAY.
     Route: 049
  28. RHEUMATREX [Concomitant]
     Indication: RHEUMATOID ARTHRITIS
     Route: 049

REACTIONS (14)
  - ABDOMINAL PAIN [None]
  - ANAEMIA [None]
  - BLINDNESS [None]
  - CEREBRAL INFARCTION [None]
  - CONTRAST MEDIA REACTION [None]
  - GASTROINTESTINAL HAEMORRHAGE [None]
  - GENERALISED OEDEMA [None]
  - HEADACHE [None]
  - NEPHROTIC SYNDROME [None]
  - OEDEMA [None]
  - PULMONARY OEDEMA [None]
  - RENAL FAILURE ACUTE [None]
  - UPPER RESPIRATORY TRACT INFECTION [None]
  - VAGINAL CANDIDIASIS [None]
